FAERS Safety Report 15130245 (Version 3)
Quarter: 2024Q4

REPORT INFORMATION
  Report Type: Spontaneous
  Country: PL (occurrence: PL)
  Receive Date: 20180711
  Receipt Date: 20241105
  Transmission Date: 20250115
  Serious: Yes (Other)
  Sender: AUROBINDO
  Company Number: PL-AUROBINDO-AUR-APL-2018-034717

PATIENT
  Age: 40 Year
  Sex: Female

DRUGS (20)
  1. RISPERIDONE [Suspect]
     Active Substance: RISPERIDONE
     Indication: Paranoia
     Dosage: 3 MILLIGRAM, ONCE A DAY
     Route: 048
     Dates: start: 201704, end: 201706
  2. RISPERIDONE [Suspect]
     Active Substance: RISPERIDONE
     Indication: Schizophrenia
     Dosage: 6 MILLIGRAM, ONCE A DAY
     Route: 048
     Dates: start: 201704
  3. RISPERIDONE [Suspect]
     Active Substance: RISPERIDONE
     Dosage: UNK
     Route: 048
     Dates: start: 201706, end: 2017
  4. ARIPIPRAZOLE [Suspect]
     Active Substance: ARIPIPRAZOLE
     Indication: Schizophrenia
     Dosage: 22.5 MILLIGRAM, ONCE A DAY
     Route: 065
     Dates: start: 201210
  5. QUETIAPINE [Suspect]
     Active Substance: QUETIAPINE
     Indication: Schizophrenia
     Dosage: 100 MILLIGRAM
     Route: 065
     Dates: start: 2017
  6. QUETIAPINE [Suspect]
     Active Substance: QUETIAPINE
     Dosage: UNK
     Route: 065
     Dates: start: 201706, end: 2017
  7. DIAZEPAM [Suspect]
     Active Substance: DIAZEPAM
     Indication: Paranoia
     Dosage: 5 MILLIGRAM, AS NECESSARY
     Route: 065
     Dates: start: 201210
  8. DIAZEPAM [Suspect]
     Active Substance: DIAZEPAM
     Indication: Schizophrenia
  9. VALPROIC ACID [Suspect]
     Active Substance: VALPROIC ACID
     Indication: Paranoia
     Dosage: 1000 MILLIGRAM (DOSAGE FORM: UNSPECIFIED, 2 X 500 MG)
     Route: 065
     Dates: start: 201210
  10. VALPROIC ACID [Suspect]
     Active Substance: VALPROIC ACID
     Indication: Schizophrenia
  11. RISPERIDONE [Suspect]
     Active Substance: RISPERIDONE
     Indication: Paranoia
     Dosage: 50 MILLIGRAM
     Route: 030
     Dates: start: 201706
  12. RISPERIDONE [Suspect]
     Active Substance: RISPERIDONE
     Indication: Schizophrenia
  13. BROMAZEPAM [Suspect]
     Active Substance: BROMAZEPAM
     Indication: Insomnia
     Dosage: 1.5 MILLIGRAM, 1 AS NECESSARY
     Route: 065
     Dates: start: 2017
  14. BROMAZEPAM [Suspect]
     Active Substance: BROMAZEPAM
     Dosage: 6 MILLIGRAM, ONCE A DAY
     Route: 065
     Dates: start: 201704
  15. BROMAZEPAM [Suspect]
     Active Substance: BROMAZEPAM
     Dosage: 3 MILLIGRAM, ONCE A DAY
     Route: 065
     Dates: start: 201704
  16. QUETIAPINE [Suspect]
     Active Substance: QUETIAPINE
     Indication: Paranoia
     Dosage: 400 MILLIGRAM, ONCE A DAY
     Route: 065
     Dates: start: 2017
  17. QUETIAPINE [Suspect]
     Active Substance: QUETIAPINE
     Indication: Schizophrenia
     Dosage: 300 MILLIGRAM, ONCE A DAY
     Route: 065
     Dates: start: 201704
  18. AKINETON [Concomitant]
     Active Substance: BIPERIDEN HYDROCHLORIDE
     Indication: Product used for unknown indication
     Dosage: 2 DOSAGE FORM
     Route: 065
     Dates: start: 201210
  19. LACTULOSUM [Concomitant]
     Indication: Product used for unknown indication
     Dosage: 2 DOSAGE FORM, ONCE A DAY
     Route: 065
     Dates: start: 201210
  20. MIDODRINE HYDROCHLORIDE [Concomitant]
     Active Substance: MIDODRINE HYDROCHLORIDE
     Indication: Product used for unknown indication
     Dosage: 5 MILLIGRAM, ONCE A DAY
     Route: 065
     Dates: start: 201210

REACTIONS (7)
  - Memory impairment [Recovered/Resolved]
  - Suicidal ideation [Recovered/Resolved]
  - Disturbance in attention [Recovered/Resolved]
  - Persecutory delusion [Recovered/Resolved]
  - Anxiety [Recovered/Resolved]
  - Treatment noncompliance [Unknown]
  - Inappropriate schedule of product administration [Unknown]

NARRATIVE: CASE EVENT DATE: 20170101
